FAERS Safety Report 22176198 (Version 1)
Quarter: 2023Q2

REPORT INFORMATION
  Report Type: Report from Study
  Country: US (occurrence: US)
  Receive Date: 20230405
  Receipt Date: 20230405
  Transmission Date: 20230721
  Serious: Yes (Hospitalization, Other)
  Sender: FDA-Public Use
  Company Number: US-GILEAD-2022-0600810

PATIENT
  Age: 88 Year
  Sex: Female

DRUGS (14)
  1. AZTREONAM LYSINE [Suspect]
     Active Substance: AZTREONAM LYSINE
     Indication: Cystic fibrosis
     Dosage: 1 ML, TID FOR 28 DAYS ON AND OFF FOR 28 DAYS.
     Route: 055
     Dates: start: 20200513
  2. AZTREONAM LYSINE [Suspect]
     Active Substance: AZTREONAM LYSINE
     Dosage: 1 ML, TID, 28 DAYS ON AND 28 DAYS OFF
     Route: 055
     Dates: start: 20200604
  3. CIPROFLOXACIN [Concomitant]
     Active Substance: CIPROFLOXACIN
  4. PREDNISONE [Concomitant]
     Active Substance: PREDNISONE
  5. FUROSEMIDE [Concomitant]
     Active Substance: FUROSEMIDE
  6. ELIQUIS [Concomitant]
     Active Substance: APIXABAN
  7. MUPIROCIN [Concomitant]
     Active Substance: MUPIROCIN
  8. MULTAQ [Concomitant]
     Active Substance: DRONEDARONE
  9. XARELTO [Concomitant]
     Active Substance: RIVAROXABAN
  10. ALBUTEROL [Concomitant]
     Active Substance: ALBUTEROL
  11. DIGOXIN [Concomitant]
     Active Substance: DIGOXIN
  12. ONDANSETRON [Concomitant]
     Active Substance: ONDANSETRON
  13. SODIUM CHLORATE [Concomitant]
     Active Substance: SODIUM CHLORATE
  14. TOBRAMYCIN [Concomitant]
     Active Substance: TOBRAMYCIN

REACTIONS (2)
  - Atrial fibrillation [Unknown]
  - Cardiac disorder [Unknown]
